FAERS Safety Report 11496117 (Version 1)
Quarter: 2015Q3

REPORT INFORMATION
  Report Type: Spontaneous
  Country: US (occurrence: US)
  Receive Date: 20150911
  Receipt Date: 20150911
  Transmission Date: 20151125
  Serious: No
  Sender: FDA-Public Use
  Company Number: US-BAYER-2015-418671

PATIENT
  Age: 78 Year
  Sex: Male
  Weight: 69.39 kg

DRUGS (1)
  1. MIRALAX [Suspect]
     Active Substance: POLYETHYLENE GLYCOL 3350
     Indication: COLITIS ULCERATIVE
     Dosage: 1 DF, QD
     Route: 048
     Dates: start: 201507

REACTIONS (3)
  - Dysgeusia [Unknown]
  - Off label use [None]
  - Product use issue [Unknown]

NARRATIVE: CASE EVENT DATE: 201507
